FAERS Safety Report 4311774-2 (Version None)
Quarter: 2004Q1

REPORT INFORMATION
  Report Type: 
  Country: None (occurrence: None)
  Receive Date: 20040302
  Receipt Date: 20031107
  Transmission Date: 20041129
  Serious: No
  Sender: FDA-Public Use
  Company Number: 200328277BWH

PATIENT
  Age: 78 Year
  Sex: Male

DRUGS (6)
  1. LEVITRA [Suspect]
     Indication: ERECTILE DYSFUNCTION
     Dosage: 10 MG PRN ORAL
     Route: 048
     Dates: start: 20031030
  2. LEVITRA [Suspect]
     Indication: ERECTILE DYSFUNCTION
     Dosage: 10 MG PRN ORAL
     Route: 048
     Dates: start: 20031106
  3. ZOCOR [Concomitant]
  4. ACCUPRIL [Concomitant]
  5. METOPROLOL [Concomitant]
  6. ASPIRIN [Concomitant]

REACTIONS (3)
  - EPISTAXIS [None]
  - ERECTILE DYSFUNCTION [None]
  - VERTIGO [None]
